FAERS Safety Report 10713569 (Version 2)
Quarter: 2015Q2

REPORT INFORMATION
  Report Type: Spontaneous
  Country: US (occurrence: US)
  Receive Date: 20150115
  Receipt Date: 20150518
  Transmission Date: 20150821
  Serious: Yes (Death, Hospitalization)
  Sender: FDA-Public Use
  Company Number: US-PFIZER INC-2015010419

PATIENT
  Age: 94 Year
  Sex: Female

DRUGS (1)
  1. NORVASC [Suspect]
     Active Substance: AMLODIPINE BESYLATE
     Dosage: UNK
     Dates: end: 2013

REACTIONS (2)
  - Cardiac failure congestive [Recovering/Resolving]
  - Death [Fatal]

NARRATIVE: CASE EVENT DATE: 201310
